FAERS Safety Report 18056375 (Version 2)
Quarter: 2023Q1

REPORT INFORMATION
  Report Type: Spontaneous
  Country: CA (occurrence: CA)
  Receive Date: 20200722
  Receipt Date: 20230301
  Transmission Date: 20230417
  Serious: Yes (Life-Threatening, Hospitalization, Other)
  Sender: FDA-Public Use
  Company Number: CA-009507513-2007CAN007967

PATIENT
  Age: 78 Year
  Sex: Female
  Weight: 94 kg

DRUGS (1)
  1. KEYTRUDA [Suspect]
     Active Substance: PEMBROLIZUMAB
     Indication: Bladder cancer
     Dosage: DOSAGE FORM: SOLUTION INTRAVENOUS, 4 ML SINGLE USE VIAL, FOR INFUSION
     Route: 042
     Dates: start: 2019

REACTIONS (3)
  - Colitis [Recovered/Resolved]
  - Diarrhoea [Recovered/Resolved]
  - Melaena [Recovered/Resolved]

NARRATIVE: CASE EVENT DATE: 20190101
